FAERS Safety Report 24362744 (Version 2)
Quarter: 2025Q1

REPORT INFORMATION
  Report Type: Spontaneous
  Country: JP (occurrence: JP)
  Receive Date: 20240925
  Receipt Date: 20250129
  Transmission Date: 20250408
  Serious: Yes (Other)
  Sender: MERCK
  Company Number: JP-MSD-M2024-37804

PATIENT
  Age: 7 Decade
  Sex: Male

DRUGS (4)
  1. KEYTRUDA [Suspect]
     Active Substance: PEMBROLIZUMAB
     Indication: Oesophageal carcinoma
     Dosage: 200 MILLIGRAM, Q3W
     Route: 041
  2. KEYTRUDA [Suspect]
     Active Substance: PEMBROLIZUMAB
     Indication: PD-L1 positive cancer
  3. FLUOROURACIL [Concomitant]
     Active Substance: FLUOROURACIL
     Route: 065
  4. CISPLATIN [Concomitant]
     Active Substance: CISPLATIN
     Route: 065

REACTIONS (3)
  - Malignant neoplasm progression [Unknown]
  - Stevens-Johnson syndrome [Unknown]
  - Neuropathy peripheral [Unknown]
